FAERS Safety Report 6939625-8 (Version None)
Quarter: 2010Q3

REPORT INFORMATION
  Report Type: 
  Country: None (occurrence: None)
  Receive Date: 20100820
  Receipt Date: 20100805
  Transmission Date: 20110219
  Serious: Yes (Hospitalization)
  Sender: FDA-Public Use
  Company Number: 2010MA001680

PATIENT
  Sex: Male

DRUGS (1)
  1. RAMIPRIL [Suspect]

REACTIONS (1)
  - PRESYNCOPE [None]
